FAERS Safety Report 5210918-8 (Version None)
Quarter: 2007Q1

REPORT INFORMATION
  Report Type: 
  Country: None (occurrence: None)
  Receive Date: 20070117
  Receipt Date: 20070109
  Transmission Date: 20070707
  Serious: Yes (Hospitalization)
  Sender: FDA-Public Use
  Company Number: AU-BOEHRINGER INGELHEIM PHARMACEUTICALS, INC.-2007-BP-00351AU

PATIENT
  Sex: Female

DRUGS (5)
  1. MOBIC [Suspect]
     Route: 048
     Dates: start: 20051206, end: 20060421
  2. RAMIPRIL [Concomitant]
  3. ATENOLOL [Concomitant]
  4. CALCIUM [Concomitant]
  5. ASPIRIN [Concomitant]

REACTIONS (2)
  - ATRIAL FIBRILLATION [None]
  - PULMONARY OEDEMA [None]
